FAERS Safety Report 25410612 (Version 3)
Quarter: 2025Q3

REPORT INFORMATION
  Report Type: Report from Study
  Country: US (occurrence: US)
  Receive Date: 20250609
  Receipt Date: 20250917
  Transmission Date: 20251021
  Serious: Yes (Other)
  Sender: ABBVIE
  Company Number: US-ABBVIE-6309918

PATIENT
  Sex: Female
  Weight: 61 kg

DRUGS (2)
  1. SKYRIZI [Suspect]
     Active Substance: RISANKIZUMAB-RZAA
     Indication: Psoriasis
     Dates: start: 20241106
  2. SKYRIZI [Suspect]
     Active Substance: RISANKIZUMAB-RZAA
     Route: 058
     Dates: start: 20241106, end: 2025

REACTIONS (3)
  - Craniofacial fracture [Recovering/Resolving]
  - Fall [Recovering/Resolving]
  - Injury [Recovering/Resolving]

NARRATIVE: CASE EVENT DATE: 20250301
